FAERS Safety Report 21209395 (Version 1)
Quarter: 2022Q3

REPORT INFORMATION
  Report Type: Report from Study
  Country: US (occurrence: US)
  Receive Date: 20220813
  Receipt Date: 20220813
  Transmission Date: 20221026
  Serious: Yes (Hospitalization, Other)
  Sender: FDA-Public Use
  Company Number: US-ABBVIE-22K-163-4464059-00

PATIENT
  Sex: Male

DRUGS (1)
  1. IMBRUVICA [Suspect]
     Active Substance: IBRUTINIB
     Indication: Non-Hodgkin^s lymphoma
     Route: 048
     Dates: start: 202204

REACTIONS (6)
  - Depressed level of consciousness [Unknown]
  - Memory impairment [Unknown]
  - Cerebrovascular accident [Recovering/Resolving]
  - Lymphoma [Unknown]
  - Loss of personal independence in daily activities [Unknown]
  - Memory impairment [Unknown]

NARRATIVE: CASE EVENT DATE: 20220101
